FAERS Safety Report 4340321-4 (Version None)
Quarter: 2004Q2

REPORT INFORMATION
  Report Type: 
  Country: None (occurrence: None)
  Receive Date: 20040412
  Receipt Date: 20040329
  Transmission Date: 20050107
  Serious: Yes (Life-Threatening, Hospitalization, Other)
  Sender: FDA-Public Use
  Company Number: 2004012714

PATIENT
  Age: 73 Year
  Sex: Male
  Weight: 67 kg

DRUGS (6)
  1. SULPERAZON (CEFOPERAZONE, SULBACTAM) [Suspect]
     Indication: CHOLECYSTITIS
     Dosage: 2 GRAM (BID), INTRAVENOUS
     Route: 042
     Dates: start: 20040217, end: 20040201
  2. MARZULENE S (LEVOGLUTAMIDE, SODIUM GUALENATE) [Concomitant]
  3. AMLODIPINE BESYLATE [Concomitant]
  4. BIOFERMIN (LACTOBACILLUS ACIDOPHILUS, BACILLUS SUBTILIS, STREPTOCOCCUS [Concomitant]
  5. CEPHALOSPORINS AND RELATED SUBSTANCES (CEPHALOSPORINS AND RELATED SUBS [Concomitant]
  6. URSODEOXYCHOLIC ACID (URSODEOXYCHOLIC ACID) [Concomitant]

REACTIONS (2)
  - HAEMODIALYSIS [None]
  - RENAL FAILURE ACUTE [None]
